FAERS Safety Report 9537738 (Version 1)
Quarter: 2013Q3

REPORT INFORMATION
  Report Type: Spontaneous
  Country: US (occurrence: US)
  Receive Date: 20130919
  Receipt Date: 20130919
  Transmission Date: 20140515
  Serious: Yes (Other)
  Sender: FDA-Public Use
  Company Number: US-BAUSCH-BL-2013-005074

PATIENT
  Age: 34 Year
  Sex: Female

DRUGS (4)
  1. ALBUTEROL SULFATE [Suspect]
     Indication: PRODUCT USED FOR UNKNOWN INDICATION
     Dosage: INHALATION SOLUTION
  2. FLUOXETINE [Concomitant]
  3. AMITRIPTYLINE [Concomitant]
  4. MULTIVITAMIN [Concomitant]

REACTIONS (6)
  - Condition aggravated [Recovering/Resolving]
  - Familial periodic paralysis [Recovering/Resolving]
  - Pain in extremity [Recovering/Resolving]
  - Tachycardia [Recovering/Resolving]
  - Hypoaesthesia [Recovering/Resolving]
  - Muscle spasms [Recovering/Resolving]
